FAERS Safety Report 8059738-X (Version None)
Quarter: 2012Q1

REPORT INFORMATION
  Report Type: 
  Country: None (occurrence: None)
  Receive Date: 20120120
  Receipt Date: 20120117
  Transmission Date: 20120608
  Serious: Yes (Death, Hospitalization)
  Sender: FDA-Public Use
  Company Number: PHHY2012MX004560

PATIENT
  Sex: Female

DRUGS (6)
  1. EXFORGE [Suspect]
     Dosage: 1 DF (160/5 MG), DAILY
     Dates: start: 20110905
  2. EXFORGE [Suspect]
     Indication: HYPERTENSION
     Dosage: 1 DF (160/5 MG), DAILY
     Dates: start: 20110701, end: 20110902
  3. OMEPRAZOLE [Concomitant]
     Indication: GASTRIC DISORDER
     Dosage: UNK UKN, UNK
  4. CORTISONE ACETATE [Concomitant]
     Dosage: UNK UKN, UNK
  5. BI-EUGLUCON [Concomitant]
     Indication: DIABETES MELLITUS
     Dosage: UNK UKN, UNK
  6. LEVOTHYROXINE SODIUM [Concomitant]
     Indication: THYROID DISORDER
     Dosage: 1 DF, DAILY

REACTIONS (4)
  - ABDOMINAL PAIN [None]
  - DEATH [None]
  - DIABETIC COMPLICATION [None]
  - ABDOMINAL ADHESIONS [None]
